FAERS Safety Report 6678271-0 (Version None)
Quarter: 2010Q2

REPORT INFORMATION
  Report Type: 
  Country: None (occurrence: None)
  Receive Date: 20100412
  Receipt Date: 20100406
  Transmission Date: 20101027
  Serious: Yes (Other)
  Sender: FDA-Public Use
  Company Number: FR-BRISTOL-MYERS SQUIBB COMPANY-15050610

PATIENT
  Age: 44 Year
  Sex: Female

DRUGS (1)
  1. ABILIFY [Suspect]
     Dosage: INTIAL DOSAGE WAS 5MG/DAY FOR 10 DAYS THEN 10MG/DAY FOR AROUND 3 WKS

REACTIONS (1)
  - CEREBRAL VENOUS THROMBOSIS [None]
